FAERS Safety Report 8076820-1 (Version None)
Quarter: 2012Q1

REPORT INFORMATION
  Report Type: 
  Country: None (occurrence: None)
  Receive Date: 20120127
  Receipt Date: 20120124
  Transmission Date: 20120608
  Serious: Yes (Life-Threatening, Hospitalization, Disabling, Other)
  Sender: FDA-Public Use
  Company Number: PH-PFIZER INC-2010035263

PATIENT
  Sex: Male
  Weight: 71 kg

DRUGS (15)
  1. NAPROXEN [Suspect]
     Indication: OSTEOARTHRITIS
     Dosage: UNK
     Route: 048
     Dates: start: 20091111, end: 20091201
  2. TRAMADOL HYDROCHLORIDE [Concomitant]
     Indication: OSTEOARTHRITIS
     Dosage: 100 MG, 4X/DAY
     Dates: start: 20091202, end: 20091207
  3. IBUPROFEN [Suspect]
     Indication: OSTEOARTHRITIS
     Dosage: UNK
     Route: 048
     Dates: start: 20091111, end: 20091201
  4. PIPERACILLIN AND TAZOBACTAM [Concomitant]
     Indication: CELLULITIS
     Dosage: 4.5 G, 3X/DAY
     Route: 042
     Dates: start: 20091202, end: 20091209
  5. DYNASTAT [Concomitant]
     Indication: OSTEOARTHRITIS
     Dosage: 40 MG, 1X/DAY
     Dates: start: 20091206, end: 20091207
  6. BLINDED NO SUBJECT DRUG [Suspect]
     Indication: OSTEOARTHRITIS
     Dosage: UNK
     Route: 048
     Dates: start: 20091111, end: 20091201
  7. AUGMENTIN '125' [Concomitant]
     Indication: CELLULITIS
     Dosage: 1 G, 2X/DAY
     Dates: start: 20091209, end: 20091215
  8. NAPROXEN [Suspect]
     Dosage: UNK
     Route: 048
     Dates: start: 20091111, end: 20091201
  9. BLINDED PLACEBO [Suspect]
     Indication: OSTEOARTHRITIS
     Dosage: UNK
     Route: 048
     Dates: start: 20091111, end: 20091201
  10. CLINDAMYCIN HCL [Concomitant]
     Indication: CELLULITIS
     Dosage: 300 MG, 4X/DAY
     Route: 048
     Dates: start: 20091203, end: 20091205
  11. IBUPROFEN [Suspect]
     Dosage: UNK
     Route: 048
     Dates: start: 20091111, end: 20091201
  12. TRAMADOL HYDROCHLORIDE [Concomitant]
     Dosage: 50 MG, 4X/DAY
     Dates: start: 20091208
  13. PLETAL [Concomitant]
     Indication: PERIPHERAL ISCHAEMIA
     Dosage: 100 MG, 2X/DAY
     Route: 048
     Dates: start: 20091210
  14. CELECOXIB [Suspect]
     Indication: OSTEOARTHRITIS
     Dosage: UNK
     Route: 048
     Dates: start: 20091111, end: 20091201
  15. NEXIUM [Concomitant]
     Indication: PROPHYLAXIS AGAINST GASTROINTESTINAL ULCER
     Dosage: 20 MG, 1X/DAY
     Route: 048
     Dates: start: 20091111, end: 20091201

REACTIONS (1)
  - PERIPHERAL ISCHAEMIA [None]
